FAERS Safety Report 8360151-6 (Version None)
Quarter: 2012Q2

REPORT INFORMATION
  Report Type: 
  Country: None (occurrence: None)
  Receive Date: 20120515
  Receipt Date: 20110617
  Transmission Date: 20120825
  Serious: No
  Sender: FDA-Public Use
  Company Number: US-ALEXION-A201100897

PATIENT
  Sex: Male

DRUGS (13)
  1. LOPERAMIDE [Concomitant]
     Dosage: 2 MG, QID
     Route: 048
  2. METOPROLOL TARTRATE [Concomitant]
     Dosage: 12.5 MG, QD
     Route: 048
  3. PRESERVISION LUTEIN EYE VITA.+MIN.SUP.SOFTG. [Concomitant]
     Dosage: 226 MG (1-2 TAB), QD
     Route: 048
  4. DANAZOL [Concomitant]
     Dosage: 200 MG, TID
     Route: 048
  5. EUCERIN [Concomitant]
     Dosage: UNK
     Route: 062
  6. VITAMIN B6 [Concomitant]
     Dosage: 1 QD
     Route: 048
  7. FUROSEMIDE [Concomitant]
     Dosage: 40 MG, QOD
     Route: 048
  8. UROXATRAL [Concomitant]
     Dosage: 1 HS
     Route: 048
  9. VITAMIN B-12 [Concomitant]
     Dosage: 25 UG, QOD
     Route: 048
  10. POTASSIUM CHLORIDE [Concomitant]
     Dosage: 20 MEQ, QOD
     Route: 048
  11. FOLIC ACID [Concomitant]
     Dosage: 1 MG, QD
     Route: 048
  12. SOLIRIS [Suspect]
     Indication: PAROXYSMAL NOCTURNAL HAEMOGLOBINURIA
     Dosage: 900 MG, UNK
     Route: 042
  13. PILOCARPINE [Concomitant]
     Dosage: 1 GTT, QD (LEFT EYE)
     Route: 047

REACTIONS (1)
  - HAEMOGLOBINURIA [None]
